FAERS Safety Report 5873544-3 (Version None)
Quarter: 2008Q3

REPORT INFORMATION
  Report Type: 
  Country: None (occurrence: None)
  Receive Date: 20080908
  Receipt Date: 20080804
  Transmission Date: 20090109
  Serious: No
  Sender: FDA-Public Use
  Company Number: US-BAYER-200810611BCC

PATIENT
  Age: 60 Year
  Sex: Male
  Weight: 113 kg

DRUGS (7)
  1. ALEVE (CAPLET) [Suspect]
     Indication: ARTHRALGIA
     Route: 048
     Dates: end: 20080206
  2. ASPIRIN [Suspect]
     Indication: DRUG USE FOR UNKNOWN INDICATION
     Route: 048
  3. TOPROL-XL [Concomitant]
  4. CITALOPRAM HYDROBROMIDE [Concomitant]
  5. LASIX [Concomitant]
  6. FLOMAX [Concomitant]
  7. ADVAIR DISKUS 100/50 [Concomitant]

REACTIONS (1)
  - CONTUSION [None]
